FAERS Safety Report 15601275 (Version 6)
Quarter: 2021Q3

REPORT INFORMATION
  Report Type: Report from Study
  Country: CO (occurrence: CO)
  Receive Date: 20181109
  Receipt Date: 20210802
  Transmission Date: 20211014
  Serious: Yes (Other)
  Sender: FDA-Public Use
  Company Number: PHHY2018CO148969

PATIENT
  Age: 58 Year
  Sex: Female
  Weight: 68 kg

DRUGS (3)
  1. TASIGNA [Suspect]
     Active Substance: NILOTINIB
     Indication: CHRONIC MYELOID LEUKAEMIA
     Dosage: 300 MG,BID (EVERY 12 HOURS)
     Route: 048
     Dates: start: 20181009
  2. TASIGNA [Suspect]
     Active Substance: NILOTINIB
     Dosage: UNK, QD (TABLET)
     Route: 048
  3. DIOSMIN [Concomitant]
     Active Substance: DIOSMIN
     Indication: BLOOD DISORDER
     Dosage: 450 MG, Q12H
     Route: 048

REACTIONS (30)
  - Abdominal distension [Unknown]
  - Neck mass [Recovering/Resolving]
  - Pseudomonas infection [Unknown]
  - Abdominal discomfort [Recovered/Resolved]
  - Gastrointestinal tract irritation [Unknown]
  - Sensitive skin [Unknown]
  - Anxiety [Unknown]
  - Spinal pain [Unknown]
  - Somnolence [Unknown]
  - Burning sensation [Unknown]
  - Inappropriate schedule of product administration [Unknown]
  - Anxiety [Recovered/Resolved]
  - Pain in extremity [Unknown]
  - Taste disorder [Unknown]
  - Paraesthesia [Unknown]
  - Drug intolerance [Unknown]
  - Chest pain [Unknown]
  - Dyspnoea [Unknown]
  - Abdominal discomfort [Unknown]
  - Gait disturbance [Unknown]
  - Hyperhidrosis [Unknown]
  - Gastritis [Unknown]
  - Dry skin [Unknown]
  - Bone pain [Unknown]
  - Rash [Unknown]
  - Hypersensitivity [Recovering/Resolving]
  - Depression [Recovered/Resolved]
  - Colitis [Unknown]
  - Secretion discharge [Unknown]
  - Skin tightness [Unknown]

NARRATIVE: CASE EVENT DATE: 20191004
